FAERS Safety Report 5870760-1 (Version None)
Quarter: 2008Q3

REPORT INFORMATION
  Report Type: 
  Country: None (occurrence: None)
  Receive Date: 20080904
  Receipt Date: 20080714
  Transmission Date: 20090109
  Serious: Yes (Other)
  Sender: FDA-Public Use
  Company Number: US-PURDUE-USA_2008_0034499

PATIENT
  Age: 55 Year
  Sex: Male

DRUGS (4)
  1. OXYCONTIN [Suspect]
     Indication: POSTOPERATIVE ANALGESIA
     Dosage: 80 MG, SEE TEXT
     Route: 048
     Dates: start: 19981124
  2. VALIUM [Concomitant]
     Indication: DRUG USE FOR UNKNOWN INDICATION
  3. PROZAC [Concomitant]
     Indication: DRUG USE FOR UNKNOWN INDICATION
     Dosage: 40 MG, DAILY
     Route: 048
  4. FLEXERIL [Concomitant]
     Indication: DRUG USE FOR UNKNOWN INDICATION
     Dosage: 610 MG, DAILY
     Route: 048

REACTIONS (8)
  - ANGER [None]
  - DEPRESSION [None]
  - DISORIENTATION [None]
  - DRUG DEPENDENCE [None]
  - DRUG WITHDRAWAL SYNDROME [None]
  - INSOMNIA [None]
  - RESTLESSNESS [None]
  - SUICIDAL IDEATION [None]
